FAERS Safety Report 13264450 (Version 1)
Quarter: 2017Q1

REPORT INFORMATION
  Report Type: Spontaneous
  Country: US (occurrence: US)
  Receive Date: 20170222
  Receipt Date: 20170222
  Transmission Date: 20170428
  Serious: No
  Sender: FDA-Public Use
  Company Number: None

PATIENT
  Age: 57 Year
  Sex: Female

DRUGS (9)
  1. TROSPIN [Concomitant]
  2. BACLOFEN. [Concomitant]
     Active Substance: BACLOFEN
  3. COPAXONE [Suspect]
     Active Substance: GLATIRAMER ACETATE
     Indication: MULTIPLE SCLEROSIS
     Dosage: PRIOR TO 17 FEB 2016
     Route: 058
     Dates: start: 20160217
  4. CEPHALEXIN. [Concomitant]
     Active Substance: CEPHALEXIN
  5. CYANOCOBALA.RN [Concomitant]
  6. CIPROFLOXACN [Concomitant]
     Active Substance: CIPROFLOXACIN
  7. NYSTATIN. [Concomitant]
     Active Substance: NYSTATIN
  8. AMPHET/DEXTR [Concomitant]
  9. LIDOCAINE. [Concomitant]
     Active Substance: LIDOCAINE

REACTIONS (2)
  - Multiple sclerosis [None]
  - Condition aggravated [None]
